FAERS Safety Report 7615765-5 (Version None)
Quarter: 2011Q3

REPORT INFORMATION
  Report Type: 
  Country: None (occurrence: None)
  Receive Date: 20110715
  Receipt Date: 20110715
  Transmission Date: 20111222
  Serious: Yes (Other)
  Sender: FDA-Public Use
  Company Number: None

PATIENT
  Age: 62 Year
  Sex: Female

DRUGS (6)
  1. OXYBUTYNIN [Concomitant]
  2. PREDNISONE [Concomitant]
  3. PROAIR HFA [Concomitant]
  4. AMPYRA [Suspect]
     Indication: MULTIPLE SCLEROSIS
     Dosage: 10 MG Q 12 HOUR ORALLY
     Route: 003
     Dates: start: 20100620, end: 20110201
  5. DIAZEPAM [Concomitant]
  6. NUVIGIL [Concomitant]

REACTIONS (2)
  - NO THERAPEUTIC RESPONSE [None]
  - FALL [None]
